FAERS Safety Report 10476650 (Version 5)
Quarter: 2015Q3

REPORT INFORMATION
  Report Type: Report from Study
  Country: US (occurrence: US)
  Receive Date: 20140925
  Receipt Date: 20150806
  Transmission Date: 20151125
  Serious: Yes (Other)
  Sender: FDA-Public Use
  Company Number: US-SA-2013SA102348

PATIENT
  Age: 60 Year
  Sex: Female

DRUGS (2)
  1. SYNTHROID [Interacting]
     Active Substance: LEVOTHYROXINE SODIUM
     Route: 065
  2. AUBAGIO [Suspect]
     Active Substance: TERIFLUNOMIDE
     Indication: MULTIPLE SCLEROSIS
     Route: 048
     Dates: start: 20130915

REACTIONS (11)
  - Gait disturbance [Unknown]
  - Rheumatoid arthritis [Unknown]
  - Adverse event [Not Recovered/Not Resolved]
  - Drug interaction [Unknown]
  - Increased appetite [Unknown]
  - Rash pruritic [Unknown]
  - Dysphonia [Unknown]
  - Vein disorder [Unknown]
  - Thyroid disorder [Not Recovered/Not Resolved]
  - Unevaluable event [Unknown]
  - Pain in extremity [Unknown]

NARRATIVE: CASE EVENT DATE: 201505
